FAERS Safety Report 19053495 (Version 5)
Quarter: 2021Q2

REPORT INFORMATION
  Report Type: Report from Study
  Country: US (occurrence: US)
  Receive Date: 20210324
  Receipt Date: 20210609
  Transmission Date: 20210717
  Serious: Yes (Other)
  Sender: FDA-Public Use
  Company Number: US-PFIZER INC-2021285818

PATIENT
  Age: 59 Year
  Sex: Female

DRUGS (9)
  1. MODERNA COVID?19 VACCINE [Interacting]
     Active Substance: CX-024414
     Dosage: 1 DF, SINGLE, SECOND DOSE (1 IN 1 ONCE)
     Route: 030
  2. HUMIRA [Interacting]
     Active Substance: ADALIMUMAB
     Dosage: 40 MG [1 IN 1 WK] [CITRATE FREE]
     Route: 058
     Dates: start: 2019
  3. PHENERGAN [Interacting]
     Active Substance: PROMETHAZINE HYDROCHLORIDE
     Dosage: UNK
     Route: 065
  4. ZITHROMAX [Suspect]
     Active Substance: AZITHROMYCIN DIHYDRATE
     Dosage: UNK
     Route: 065
  5. HUMIRA [Interacting]
     Active Substance: ADALIMUMAB
     Indication: RHEUMATOID ARTHRITIS
     Dosage: 40 MG [1 IN 2 WK] [CITRATE FREE]
     Route: 058
     Dates: start: 2013
  6. HUMIRA [Interacting]
     Active Substance: ADALIMUMAB
     Dosage: UNK
     Route: 058
  7. HUMIRA [Interacting]
     Active Substance: ADALIMUMAB
     Dosage: 40 MG [1 IN 1 WK] [CITRATE FREE]
     Route: 058
  8. MODERNA COVID?19 VACCINE [Interacting]
     Active Substance: CX-024414
     Indication: COVID-19 IMMUNISATION
     Dosage: 1 DF, SINGLE, 1 ST DOSE (1 IN 1 ONCE)
     Route: 030
  9. OXYBUTYNIN. [Interacting]
     Active Substance: OXYBUTYNIN CHLORIDE
     Dosage: UNK
     Dates: end: 20210308

REACTIONS (33)
  - Feeling hot [Recovering/Resolving]
  - Inflammation [Recovering/Resolving]
  - Intervertebral disc disorder [Unknown]
  - Procedural pain [Unknown]
  - Feeling abnormal [Not Recovered/Not Resolved]
  - Neck pain [Unknown]
  - Rash erythematous [Recovered/Resolved]
  - Glossodynia [Not Recovered/Not Resolved]
  - Arthralgia [Recovering/Resolving]
  - Eye swelling [Unknown]
  - Hernia [Not Recovered/Not Resolved]
  - Diarrhoea [Recovering/Resolving]
  - Nasal congestion [Recovering/Resolving]
  - Lacrimation increased [Not Recovered/Not Resolved]
  - Ocular hyperaemia [Not Recovered/Not Resolved]
  - Peripheral swelling [Not Recovered/Not Resolved]
  - Drug interaction [Recovering/Resolving]
  - Eye pruritus [Not Recovered/Not Resolved]
  - Nephrolithiasis [Unknown]
  - Nausea [Recovering/Resolving]
  - Nasopharyngitis [Unknown]
  - Discomfort [Unknown]
  - Fungal skin infection [Not Recovered/Not Resolved]
  - Injection site pruritus [Recovered/Resolved]
  - Muscle spasms [Not Recovered/Not Resolved]
  - Spondylitis [Not Recovered/Not Resolved]
  - Rheumatoid arthritis [Not Recovered/Not Resolved]
  - Arthritis [Unknown]
  - Tooth loss [Unknown]
  - Back pain [Not Recovered/Not Resolved]
  - Hypersensitivity [Not Recovered/Not Resolved]
  - Pruritus [Recovered/Resolved]
  - Musculoskeletal discomfort [Unknown]

NARRATIVE: CASE EVENT DATE: 2018
